APPROVED DRUG PRODUCT: MECLOFENAMATE SODIUM
Active Ingredient: MECLOFENAMATE SODIUM
Strength: EQ 100MG BASE
Dosage Form/Route: CAPSULE;ORAL
Application: A071008 | Product #001
Applicant: USL PHARMA INC
Approved: Mar 25, 1988 | RLD: No | RS: No | Type: DISCN